FAERS Safety Report 4532521-5 (Version None)
Quarter: 2004Q4

REPORT INFORMATION
  Report Type: 
  Country: None (occurrence: None)
  Receive Date: 20041206
  Receipt Date: 20041020
  Transmission Date: 20050328
  Serious: No
  Sender: FDA-Public Use
  Company Number: USA041081716

PATIENT
  Sex: Female

DRUGS (4)
  1. ALIMTA [Suspect]
     Dosage: 500 MG/M2
  2. VITAMIN B-12 [Concomitant]
  3. FOLIC ACID [Concomitant]
  4. DECADRON [Concomitant]

REACTIONS (1)
  - RASH GENERALISED [None]
